FAERS Safety Report 16489796 (Version 1)
Quarter: 2019Q3

REPORT INFORMATION
  Report Type: Spontaneous
  Country: US (occurrence: US)
  Receive Date: 20190627
  Receipt Date: 20190627
  Transmission Date: 20191004
  Serious: Yes (Life-Threatening, Hospitalization, Disabling, Other)
  Sender: FDA-Public Use
  Company Number: None

PATIENT
  Age: 63 Year
  Sex: Male
  Weight: 118.8 kg

DRUGS (1)
  1. ALOGLIPTIN 25MG [Suspect]
     Active Substance: ALOGLIPTIN
     Indication: DIABETES MELLITUS
     Dosage: ?          QUANTITY:1 TABLET(S);?
     Route: 048
     Dates: start: 20190522, end: 20190612

REACTIONS (5)
  - Dialysis [None]
  - Fall [None]
  - Renal failure [None]
  - Asthenia [None]
  - Hypoglycaemia [None]

NARRATIVE: CASE EVENT DATE: 20190612
